FAERS Safety Report 6121190-9 (Version None)
Quarter: 2009Q1

REPORT INFORMATION
  Report Type: 
  Country: None (occurrence: None)
  Receive Date: 20090312
  Receipt Date: 20090312
  Transmission Date: 20090719
  Serious: No
  Sender: FDA-Public Use
  Company Number: None

PATIENT
  Age: 41 Year
  Sex: Female
  Weight: 90.7194 kg

DRUGS (2)
  1. OXYCODONE AND ACETAMINOPHEN [Suspect]
     Indication: ARTHRALGIA
     Dates: start: 20090303, end: 20090306
  2. PERCOCET [Suspect]

REACTIONS (6)
  - ARTHRALGIA [None]
  - CAESAREAN SECTION [None]
  - DRUG EXPOSURE BEFORE PREGNANCY [None]
  - INADEQUATE ANALGESIA [None]
  - PREGNANCY [None]
  - PRODUCT QUALITY ISSUE [None]
